FAERS Safety Report 4728843-5 (Version None)
Quarter: 2005Q3

REPORT INFORMATION
  Report Type: 
  Country: None (occurrence: None)
  Receive Date: 20050729
  Receipt Date: 20050718
  Transmission Date: 20060218
  Serious: Yes (Hospitalization)
  Sender: FDA-Public Use
  Company Number: AT-ROCHE-411168

PATIENT
  Age: 64 Year
  Sex: Male
  Weight: 95 kg

DRUGS (3)
  1. INTERFERON ALFA-2A [Suspect]
     Indication: METASTATIC RENAL CELL CARCINOMA
     Route: 058
     Dates: start: 20050125, end: 20050417
  2. CODEINE LINCTUS [Concomitant]
     Route: 048
     Dates: start: 20050208
  3. ACETAMINOPHEN W/ CODEINE [Concomitant]
     Route: 048
     Dates: start: 20050415

REACTIONS (2)
  - DRUG INEFFECTIVE [None]
  - PERICARDIAL EFFUSION [None]
